FAERS Safety Report 22274363 (Version 1)
Quarter: 2023Q2

REPORT INFORMATION
  Report Type: Report from Study
  Country: US (occurrence: US)
  Receive Date: 20230502
  Receipt Date: 20230502
  Transmission Date: 20230722
  Serious: Yes (Other)
  Sender: FDA-Public Use
  Company Number: US-BAYER-2023A042002

PATIENT
  Age: 76 Year
  Sex: Female
  Weight: 72.562 kg

DRUGS (10)
  1. ADEMPAS [Suspect]
     Active Substance: RIOCIGUAT
     Indication: Pulmonary arterial hypertension
     Dosage: UNK
     Dates: start: 20230303
  2. ADEMPAS [Suspect]
     Active Substance: RIOCIGUAT
     Indication: Product used for unknown indication
     Dosage: 1.5 MG, TID
     Route: 048
  3. ADEMPAS [Suspect]
     Active Substance: RIOCIGUAT
     Indication: Pulmonary arterial hypertension
     Dosage: 1.5 ML
     Route: 065
     Dates: start: 20230325
  4. ADEMPAS [Suspect]
     Active Substance: RIOCIGUAT
     Indication: Pulmonary arterial hypertension
     Dosage: 2.0 MG, TID
     Route: 048
  5. EPOPROSTENOL SODIUM [Suspect]
     Active Substance: EPOPROSTENOL SODIUM
     Indication: Pulmonary arterial hypertension
     Dosage: 21600 NG/KG (15 NG/KG , L IN L MIN)
     Route: 042
     Dates: end: 20230325
  6. EPOPROSTENOL SODIUM [Suspect]
     Active Substance: EPOPROSTENOL SODIUM
     Indication: Pulmonary arterial hypertension
     Dosage: 21600 NG/KG (15 NG/KG , L IN L MIN)
     Route: 042
  7. SILDENAFIL CITRATE [Suspect]
     Active Substance: SILDENAFIL CITRATE
  8. OPSUMIT [Concomitant]
     Active Substance: MACITENTAN
     Dosage: UNK
  9. VELETRI [Concomitant]
     Active Substance: EPOPROSTENOL
     Dosage: UNK
  10. PANTOPRAZOLE [Concomitant]
     Active Substance: PANTOPRAZOLE

REACTIONS (18)
  - Choking [Not Recovered/Not Resolved]
  - Cough [Not Recovered/Not Resolved]
  - Insomnia [None]
  - Productive cough [Not Recovered/Not Resolved]
  - Laryngitis [None]
  - Pharyngitis streptococcal [None]
  - Sinusitis [Not Recovered/Not Resolved]
  - Multiple allergies [None]
  - Nasopharyngitis [Not Recovered/Not Resolved]
  - Paranasal sinus hypersecretion [None]
  - Dyspnoea [Not Recovered/Not Resolved]
  - Sinus congestion [None]
  - Chest pain [None]
  - Fatigue [None]
  - Dyspnoea exertional [None]
  - Insomnia [None]
  - Nasal congestion [None]
  - Palpitations [None]

NARRATIVE: CASE EVENT DATE: 20230301
